FAERS Safety Report 19254996 (Version 6)
Quarter: 2025Q4

REPORT INFORMATION
  Report Type: Spontaneous
  Country: US (occurrence: US)
  Receive Date: 20210513
  Receipt Date: 20251021
  Transmission Date: 20260118
  Serious: No
  Sender: PFIZER
  Company Number: US-PFIZER INC-2020511183

PATIENT
  Age: 81 Year
  Sex: Female

DRUGS (2)
  1. IBRANCE [Suspect]
     Active Substance: PALBOCICLIB
     Dosage: 125 MG, CYCLIC (OFF 7 DAYS)
     Dates: end: 20201204
  2. IBRANCE [Suspect]
     Active Substance: PALBOCICLIB
     Dosage: 125 MG, CYCLIC (OFF 7 DAYS)

REACTIONS (7)
  - Impaired driving ability [Unknown]
  - Confusional state [Unknown]
  - Illness [Unknown]
  - Dysphonia [Unknown]
  - Nausea [Unknown]
  - Dysphonia [Unknown]
  - Drug hypersensitivity [Unknown]
